FAERS Safety Report 12470349 (Version 2)
Quarter: 2018Q3

REPORT INFORMATION
  Report Type: Report from Study
  Country: JP (occurrence: JP)
  Receive Date: 20160616
  Receipt Date: 20180717
  Transmission Date: 20181010
  Serious: Yes (Hospitalization)
  Sender: FDA-Public Use
  Company Number: JP-AMGEN-JPNNI2016076464

PATIENT
  Age: 42 Year
  Sex: Male

DRUGS (10)
  1. DARBEPOETIN ALFA [Suspect]
     Active Substance: DARBEPOETIN ALFA
     Indication: PRODUCT USED FOR UNKNOWN INDICATION
     Dosage: UNK
     Route: 042
     Dates: start: 20150808, end: 20151201
  2. PHOSBLOCK [Suspect]
     Active Substance: FERRIC HYDROXIDE
     Dosage: UNK
     Route: 048
     Dates: start: 20151226
  3. PHOSBLOCK [Suspect]
     Active Substance: FERRIC HYDROXIDE
     Indication: PRODUCT USED FOR UNKNOWN INDICATION
     Dosage: UNK
     Route: 048
     Dates: start: 20141011, end: 20151003
  4. DARBEPOETIN ALFA [Suspect]
     Active Substance: DARBEPOETIN ALFA
     Dosage: UNK
     Route: 042
     Dates: start: 20171028, end: 20180106
  5. PHOSBLOCK [Suspect]
     Active Substance: FERRIC HYDROXIDE
     Dosage: UNK
     Route: 048
     Dates: start: 20151003, end: 20151226
  6. SEVELAMER [Suspect]
     Active Substance: SEVELAMER
     Indication: PRODUCT USED FOR UNKNOWN INDICATION
     Dosage: UNK
     Route: 048
     Dates: start: 20141011, end: 20151003
  7. SEVELAMER [Suspect]
     Active Substance: SEVELAMER
     Dosage: UNK
     Route: 048
     Dates: start: 20160830
  8. DARBEPOETIN ALFA [Suspect]
     Active Substance: DARBEPOETIN ALFA
     Dosage: UNK
     Route: 042
     Dates: start: 20151208, end: 20151226
  9. SEVELAMER [Suspect]
     Active Substance: SEVELAMER
     Dosage: UNK
     Route: 048
     Dates: start: 20151003, end: 20151226
  10. SEVELAMER [Suspect]
     Active Substance: SEVELAMER
     Dosage: UNK
     Route: 048
     Dates: start: 20151226, end: 20160830

REACTIONS (7)
  - Hospitalisation [Unknown]
  - Arteriovenous fistula site complication [Recovering/Resolving]
  - Angina pectoris [Recovering/Resolving]
  - Angina pectoris [Recovering/Resolving]
  - Arteriovenous fistula site complication [Recovering/Resolving]
  - Angina pectoris [Recovering/Resolving]
  - Hospitalisation [Recovering/Resolving]

NARRATIVE: CASE EVENT DATE: 20150709
